FAERS Safety Report 4415321-6 (Version None)
Quarter: 2004Q3

REPORT INFORMATION
  Report Type: 
  Country: None (occurrence: None)
  Receive Date: 20040730
  Receipt Date: 20040723
  Transmission Date: 20050211
  Serious: Yes (Other)
  Sender: FDA-Public Use
  Company Number: ZONI001476

PATIENT
  Age: 62 Year
  Sex: Female

DRUGS (1)
  1. EXCEGRAN (ZONISAMIDE) [Suspect]
     Dosage: 100 MG DAILY ORAL
     Route: 048
     Dates: start: 20010701, end: 20010801

REACTIONS (1)
  - DRUG ERUPTION [None]
